FAERS Safety Report 7602490-X (Version None)
Quarter: 2011Q3

REPORT INFORMATION
  Report Type: 
  Country: None (occurrence: None)
  Receive Date: 20110712
  Receipt Date: 20110706
  Transmission Date: 20111222
  Serious: Yes (Hospitalization)
  Sender: FDA-Public Use
  Company Number: CN-BRISTOL-MYERS SQUIBB COMPANY-15879729

PATIENT
  Sex: Male

DRUGS (2)
  1. METHYLPREDNISOLONE [Concomitant]
  2. BARACLUDE [Suspect]
     Indication: HEPATITIS B
     Route: 048
     Dates: start: 20110101

REACTIONS (2)
  - RASH [None]
  - PNEUMONIA [None]
